FAERS Safety Report 5499064-6 (Version None)
Quarter: 2007Q4

REPORT INFORMATION
  Report Type: 
  Country: None (occurrence: None)
  Receive Date: 20071026
  Receipt Date: 20070524
  Transmission Date: 20080405
  Serious: No
  Sender: FDA-Public Use
  Company Number: A0652881A

PATIENT
  Age: 52 Year
  Sex: Male

DRUGS (4)
  1. ADVAIR DISKUS 100/50 [Suspect]
     Indication: CHRONIC OBSTRUCTIVE PULMONARY DISEASE
     Dosage: 1PUFF TWICE PER DAY
     Route: 055
     Dates: start: 20070301
  2. AVAPRO [Concomitant]
  3. VERAPAMIL [Concomitant]
  4. VITAMIN [Concomitant]

REACTIONS (2)
  - AGEUSIA [None]
  - ORAL DISCOMFORT [None]
